FAERS Safety Report 20791280 (Version 6)
Quarter: 2022Q2

REPORT INFORMATION
  Report Type: Spontaneous
  Country: ES (occurrence: ES)
  Receive Date: 20220505
  Receipt Date: 20220622
  Transmission Date: 20220720
  Serious: Yes (Death, Hospitalization)
  Sender: FDA-Public Use
  Company Number: ES-NOVARTISPH-NVSC2022ES002655

PATIENT
  Age: 68 Year
  Sex: Male
  Weight: 103.6 kg

DRUGS (47)
  1. RITUXIMAB [Suspect]
     Active Substance: RITUXIMAB
     Indication: Diffuse large B-cell lymphoma
     Dosage: 828.75 MG/M2, Q3W, (828.75 MG/M2, Q3W, ON 12/NOV/2021, HE RECEIVED MOST RECENT DOSE OF RITUXIMAB PRI
     Route: 042
     Dates: start: 20211022
  2. METHYLPREDNISOLONE [Suspect]
     Active Substance: METHYLPREDNISOLONE
     Indication: Diffuse large B-cell lymphoma
     Dosage: ON 12/NOV/2021, HE RECEIVED MOST RECENT DOSE 80 MG OF METHYLPREDNISOLONE PRIOR TO SAE.
     Route: 048
     Dates: start: 20211022
  3. VINCRISTINE [Suspect]
     Active Substance: VINCRISTINE
     Indication: Diffuse large B-cell lymphoma
     Dosage: 2 MG, Q3W
     Route: 042
     Dates: start: 20211022
  4. VINCRISTINE [Suspect]
     Active Substance: VINCRISTINE
     Dosage: 2 MG/M2, Q3W
     Route: 042
     Dates: start: 20211022
  5. VINCRISTINE [Suspect]
     Active Substance: VINCRISTINE
     Dosage: 1.99 MG, Q3W
     Route: 042
     Dates: start: 20211112
  6. CYCLOPHOSPHAMIDE [Suspect]
     Active Substance: CYCLOPHOSPHAMIDE
     Indication: Diffuse large B-cell lymphoma
     Dosage: ON 12NOV2021, RECEIVED MOST RECENT DOSE PRIOR TO SAE
     Route: 042
     Dates: start: 20211022
  7. CYCLOPHOSPHAMIDE [Suspect]
     Active Substance: CYCLOPHOSPHAMIDE
     Dosage: ON 12/NOV/2021, HE RECEIVED MOST RECENT DOSE TOTAL VOLUME: 332.88 ML OF CYCLOPHOSPHAMIDE PRIOR TO SA
     Route: 042
     Dates: start: 20211022
  8. DOXORUBICIN [Suspect]
     Active Substance: DOXORUBICIN
     Indication: Diffuse large B-cell lymphoma
     Dosage: 110.5 MG, Q3W, (ON 12/NOV/2021, HE RECEIVED MOST RECENT DOSE 110.5
     Route: 042
     Dates: start: 20211022
  9. DOXORUBICIN [Suspect]
     Active Substance: DOXORUBICIN
     Dosage: ON 12/NOV/2021, HE RECEIVED MOST RECENT DOSE 110.5 MG/M2 OF DOXORUBICIN PRIOR TO SAETOTAL VOLUME: 10
     Route: 042
     Dates: start: 20211022
  10. PREDNISONE [Suspect]
     Active Substance: PREDNISONE
     Indication: Diffuse large B-cell lymphoma
     Dosage: 100 MG, (100 MG, ON 16/NOV/2021, HE RECEIVED MOST RECENT)
     Route: 048
     Dates: start: 20211023
  11. PREDNISONE [Suspect]
     Active Substance: PREDNISONE
     Dosage: 100 MG
     Route: 048
     Dates: start: 20211026, end: 20211026
  12. PREDNISONE [Suspect]
     Active Substance: PREDNISONE
     Dosage: UNK
     Route: 065
     Dates: start: 20211205, end: 20211206
  13. DEXCHLORPHENIRAMINE [Concomitant]
     Active Substance: DEXCHLORPHENIRAMINE
     Indication: Prophylaxis
     Dosage: 5 MG, QD
     Route: 042
     Dates: start: 20211119, end: 20211119
  14. DEXCHLORPHENIRAMINE [Concomitant]
     Active Substance: DEXCHLORPHENIRAMINE
     Dosage: 5 MG, QD
     Route: 042
     Dates: start: 20211203, end: 20211203
  15. DEXCHLORPHENIRAMINE [Concomitant]
     Active Substance: DEXCHLORPHENIRAMINE
     Dosage: 5 MG, QD
     Route: 042
     Dates: start: 20211210, end: 20211210
  16. DEXCHLORPHENIRAMINE [Concomitant]
     Active Substance: DEXCHLORPHENIRAMINE
     Dosage: 5 MG, QD
     Route: 042
     Dates: start: 20211217, end: 20211217
  17. VALSARTAN [Concomitant]
     Active Substance: VALSARTAN
     Indication: Hypertension
     Dosage: UNK
     Route: 065
  18. CIPROFLOXACIN [Concomitant]
     Active Substance: CIPROFLOXACIN
     Indication: Pyrexia
     Dosage: UNK
     Route: 065
     Dates: start: 20211106, end: 20211106
  19. AMOXICILLIN [Concomitant]
     Active Substance: AMOXICILLIN
     Indication: Pyrexia
     Dosage: UNK
     Route: 065
     Dates: start: 20211106, end: 20211106
  20. AMOXICILLIN [Concomitant]
     Active Substance: AMOXICILLIN
     Indication: COVID-19
     Dosage: UNK, QMO (ADVERSE EVENT OR INTERCURRENT ILLNESS - 1011-SARSCOV2 - 23 DEC 2021)
     Route: 065
     Dates: start: 20211226, end: 202201
  21. SULFAMETHOXAZOLE [Concomitant]
     Active Substance: SULFAMETHOXAZOLE
     Indication: Antibiotic prophylaxis
     Dosage: UNK
     Route: 065
     Dates: start: 20211019
  22. DEXAMETHASONE [Concomitant]
     Active Substance: DEXAMETHASONE
     Indication: Prophylaxis
     Dosage: 5 MG, QD
     Route: 042
     Dates: start: 20211119, end: 20211119
  23. DEXAMETHASONE [Concomitant]
     Active Substance: DEXAMETHASONE
     Dosage: 20 MG, QD
     Route: 042
     Dates: start: 20211119, end: 20211119
  24. DEXAMETHASONE [Concomitant]
     Active Substance: DEXAMETHASONE
     Dosage: 20 MG, QD
     Route: 042
     Dates: start: 20211203, end: 20211203
  25. DEXAMETHASONE [Concomitant]
     Active Substance: DEXAMETHASONE
     Dosage: 20 MG, QD
     Route: 042
     Dates: start: 20211217, end: 20211217
  26. TENOFOVIR [Concomitant]
     Active Substance: TENOFOVIR
     Indication: Antiviral prophylaxis
     Dosage: UNK
     Route: 065
     Dates: start: 20211019
  27. ACYCLOVIR [Concomitant]
     Active Substance: ACYCLOVIR
     Indication: Antiviral prophylaxis
     Dosage: UNK
     Route: 065
     Dates: start: 20211019
  28. ACETAMINOPHEN [Concomitant]
     Active Substance: ACETAMINOPHEN
     Indication: Prophylaxis
     Dosage: 1 G, 1X/DAY
     Route: 048
     Dates: start: 20211119, end: 20211119
  29. ACETAMINOPHEN [Concomitant]
     Active Substance: ACETAMINOPHEN
     Dosage: 1 G/DAY
     Route: 048
     Dates: start: 20211203, end: 20211203
  30. ACETAMINOPHEN [Concomitant]
     Active Substance: ACETAMINOPHEN
     Dosage: 1 G/DAY
     Route: 048
     Dates: start: 20211210, end: 20211210
  31. ACETAMINOPHEN [Concomitant]
     Active Substance: ACETAMINOPHEN
     Dosage: UNK UNK, QD
     Route: 048
     Dates: start: 20211210, end: 20211210
  32. ACETAMINOPHEN [Concomitant]
     Active Substance: ACETAMINOPHEN
     Dosage: 1 G/DAY
     Route: 048
     Dates: start: 20211217, end: 20211217
  33. ALLOPURINOL [Concomitant]
     Active Substance: ALLOPURINOL
     Indication: Hyperuricaemia
     Dosage: UNK
     Route: 065
  34. CLAVULANIC ACID [Concomitant]
     Active Substance: CLAVULANIC ACID
     Indication: Pyrexia
     Dosage: UNK
     Route: 065
     Dates: start: 20211106, end: 20211106
  35. CLAVULANIC ACID [Concomitant]
     Active Substance: CLAVULANIC ACID
     Indication: COVID-19
     Dosage: UNK, QMO
     Route: 065
     Dates: start: 20211226, end: 202201
  36. ZOFRAN [Concomitant]
     Active Substance: ONDANSETRON HYDROCHLORIDE
     Indication: Nausea
     Dosage: UNK
     Route: 065
     Dates: start: 20211118
  37. ASPIRIN [Concomitant]
     Active Substance: ASPIRIN
     Indication: Pain
     Dosage: 20 MG
     Route: 042
     Dates: start: 20211119, end: 20211119
  38. ASPIRIN [Concomitant]
     Active Substance: ASPIRIN
     Indication: Prophylaxis
     Dosage: 5 MG
     Route: 042
     Dates: start: 20211119, end: 20211119
  39. ASPIRIN [Concomitant]
     Active Substance: ASPIRIN
     Dosage: 20 MG
     Route: 042
     Dates: start: 20211203, end: 20211203
  40. ASPIRIN [Concomitant]
     Active Substance: ASPIRIN
     Dosage: 20 MG
     Route: 042
     Dates: start: 20211217, end: 20211217
  41. ASPIRIN [Concomitant]
     Active Substance: ASPIRIN
     Dosage: UNK
     Route: 065
  42. ASPIRIN [Concomitant]
     Active Substance: ASPIRIN
     Dosage: UNK
     Route: 065
  43. TRIMETHOPRIM [Concomitant]
     Active Substance: TRIMETHOPRIM
     Indication: Antibiotic prophylaxis
     Dosage: UNK
     Route: 065
     Dates: start: 20211013
  44. TRIMETHOPRIM [Concomitant]
     Active Substance: TRIMETHOPRIM
     Dosage: UNK
     Route: 065
     Dates: start: 20211019
  45. METAMIZOLE [Concomitant]
     Active Substance: METAMIZOLE
     Indication: COVID-19
     Dosage: UNK
     Route: 065
     Dates: start: 20211226
  46. LORAZEPAM [Concomitant]
     Active Substance: LORAZEPAM
     Indication: Product used for unknown indication
     Dosage: UNK
     Route: 065
  47. TAZOBACTAM [Concomitant]
     Active Substance: TAZOBACTAM
     Indication: COVID-19
     Dosage: UNK
     Route: 065

REACTIONS (4)
  - Death [Fatal]
  - Cytokine release syndrome [Recovered/Resolved with Sequelae]
  - Neutropenia [Recovered/Resolved]
  - Weight decreased [Unknown]

NARRATIVE: CASE EVENT DATE: 20210101
